FAERS Safety Report 8270896-4 (Version None)
Quarter: 2012Q2

REPORT INFORMATION
  Report Type: 
  Country: None (occurrence: None)
  Receive Date: 20120410
  Receipt Date: 20120410
  Transmission Date: 20120825
  Serious: Yes (Other)
  Sender: FDA-Public Use
  Company Number: None

PATIENT
  Age: 12 Year
  Sex: Female
  Weight: 52.163 kg

DRUGS (2)
  1. CEFDINIR [Suspect]
     Indication: OTITIS MEDIA
     Dosage: 300MG
     Route: 048
     Dates: start: 20120322, end: 20120330
  2. CEFDINIR [Concomitant]

REACTIONS (1)
  - RASH [None]
